FAERS Safety Report 10190216 (Version 1)
Quarter: 2014Q2

REPORT INFORMATION
  Report Type: Spontaneous
  Country: GB (occurrence: GB)
  Receive Date: 20140522
  Receipt Date: 20140522
  Transmission Date: 20141212
  Serious: Yes (Other)
  Sender: FDA-Public Use
  Company Number: GB-ACTAVIS-2014-10339

PATIENT
  Age: 45 Year
  Sex: Male

DRUGS (2)
  1. IBUPROFEN (UNKNOWN) [Suspect]
     Indication: ARTHRALGIA
     Dosage: 400 MG, TID
     Route: 048
     Dates: start: 20140419, end: 20140422
  2. NASONEX [Concomitant]
     Indication: PRODUCT USED FOR UNKNOWN INDICATION
     Dosage: UNK
     Route: 065

REACTIONS (2)
  - Urticaria [Recovering/Resolving]
  - Swelling face [Recovering/Resolving]
